FAERS Safety Report 8376302-3 (Version None)
Quarter: 2012Q2

REPORT INFORMATION
  Report Type: 
  Country: None (occurrence: None)
  Receive Date: 20120522
  Receipt Date: 20120515
  Transmission Date: 20120825
  Serious: Yes (Hospitalization)
  Sender: FDA-Public Use
  Company Number: US-ABBOTT-10P-163-0658738-00

PATIENT
  Sex: Female
  Weight: 41 kg

DRUGS (1)
  1. LUPRON DEPOT-PED [Suspect]
     Indication: PRECOCIOUS PUBERTY
     Dates: start: 20100601, end: 20100709

REACTIONS (4)
  - DIARRHOEA [None]
  - MYOSITIS [None]
  - INJECTION SITE ABSCESS [None]
  - ABDOMINAL PAIN [None]
